FAERS Safety Report 4786382-X (Version None)
Quarter: 2005Q3

REPORT INFORMATION
  Report Type: 
  Country: None (occurrence: None)
  Receive Date: 20050927
  Receipt Date: 20050725
  Transmission Date: 20060218
  Serious: No
  Sender: FDA-Public Use
  Company Number: USA0507103679

PATIENT
  Age: 49 Year
  Sex: Female
  Weight: 66 kg

DRUGS (7)
  1. STRATTERA [Suspect]
     Indication: ATTENTION DEFICIT/HYPERACTIVITY DISORDER
     Dosage: 40 MG EVERY OTHER DAY
     Dates: start: 20050401
  2. MIDRIN [Concomitant]
  3. VICODIN [Concomitant]
  4. ZYRTEC [Concomitant]
  5. COMPAZINE [Concomitant]
  6. MENOPAUSE FORMULA [Concomitant]
  7. ACETAMINOPHEN [Concomitant]

REACTIONS (11)
  - AGITATION [None]
  - ANOREXIA [None]
  - ASTHENIA [None]
  - COLD SWEAT [None]
  - CRYING [None]
  - HEADACHE [None]
  - MIGRAINE [None]
  - NAUSEA [None]
  - THINKING ABNORMAL [None]
  - TREMOR [None]
  - WEIGHT DECREASED [None]
